FAERS Safety Report 5989004-5 (Version None)
Quarter: 2008Q4

REPORT INFORMATION
  Report Type: 
  Country: None (occurrence: None)
  Receive Date: 20081210
  Receipt Date: 20081205
  Transmission Date: 20090506
  Serious: Yes (Hospitalization)
  Sender: FDA-Public Use
  Company Number: A0759830A

PATIENT
  Age: 52 Year
  Sex: Male
  Weight: 73.2 kg

DRUGS (6)
  1. AVANDIA [Suspect]
     Dosage: 8MG PER DAY
     Route: 048
     Dates: start: 20000101, end: 20070501
  2. TOPROL-XL [Concomitant]
  3. LOPRESSOR [Concomitant]
  4. PLAVIX [Concomitant]
  5. HEPARIN [Concomitant]
  6. VYTORIN [Concomitant]

REACTIONS (6)
  - ARTERIOSCLEROSIS [None]
  - CEREBROVASCULAR ACCIDENT [None]
  - COGNITIVE DISORDER [None]
  - CORONARY ARTERY DISEASE [None]
  - PHYSICAL DISABILITY [None]
  - SPEECH DISORDER [None]
